FAERS Safety Report 19285069 (Version 1)
Quarter: 2021Q2

REPORT INFORMATION
  Report Type: Spontaneous
  Country: US (occurrence: US)
  Receive Date: 20210521
  Receipt Date: 20210521
  Transmission Date: 20210717
  Serious: Yes (Other)
  Sender: FDA-Public Use
  Company Number: NVSC2021US030914

PATIENT
  Age: 14 Year
  Sex: Male
  Weight: 104 kg

DRUGS (1)
  1. METHOTREXATE. [Suspect]
     Active Substance: METHOTREXATE
     Indication: B PRECURSOR TYPE ACUTE LEUKAEMIA
     Dosage: UNK, BIW
     Route: 037
     Dates: start: 20171205

REACTIONS (4)
  - Asthenia [Recovered/Resolved]
  - Metastases to central nervous system [Recovered/Resolved]
  - Dysarthria [Recovered/Resolved]
  - Leukoencephalopathy [Recovered/Resolved]

NARRATIVE: CASE EVENT DATE: 20180628
